FAERS Safety Report 7078682-8 (Version None)
Quarter: 2010Q4

REPORT INFORMATION
  Report Type: 
  Country: None (occurrence: None)
  Receive Date: 20101101
  Receipt Date: 20101101
  Transmission Date: 20110411
  Serious: No
  Sender: FDA-Public Use
  Company Number: None

PATIENT

DRUGS (1)
  1. VICTOZA [Suspect]

REACTIONS (4)
  - DEPRESSION [None]
  - DRUG INTERACTION [None]
  - IMPAIRED GASTRIC EMPTYING [None]
  - SUICIDAL IDEATION [None]
